FAERS Safety Report 5588733-5 (Version None)
Quarter: 2008Q1

REPORT INFORMATION
  Report Type: 
  Country: None (occurrence: None)
  Receive Date: 20080111
  Receipt Date: 20080103
  Transmission Date: 20080703
  Serious: Yes (Other)
  Sender: FDA-Public Use
  Company Number: B0360563A

PATIENT
  Sex: Male

DRUGS (2)
  1. PAROXETINE HYDROCHLORIDE [Suspect]
     Route: 065
     Dates: start: 20020514
  2. PROZAC [Concomitant]
     Dates: start: 20030930

REACTIONS (14)
  - AFFECTIVE DISORDER [None]
  - AGITATION [None]
  - ANXIETY [None]
  - CONFUSIONAL STATE [None]
  - DEPRESSION [None]
  - DRUG WITHDRAWAL SYNDROME [None]
  - FATIGUE [None]
  - HYPERHIDROSIS [None]
  - INFLUENZA [None]
  - IRRITABILITY [None]
  - MEMORY IMPAIRMENT [None]
  - PARAESTHESIA [None]
  - SUICIDAL IDEATION [None]
  - VERTIGO [None]
